FAERS Safety Report 25391613 (Version 3)
Quarter: 2025Q4

REPORT INFORMATION
  Report Type: Spontaneous
  Country: US (occurrence: US)
  Receive Date: 20250603
  Receipt Date: 20251216
  Transmission Date: 20260118
  Serious: No
  Sender: BRAEBURN PHARMACEUTICALS
  Company Number: US-BRAEBURN PHARMACEUTICALS-US-BRA-25-000461

PATIENT
  Sex: Female

DRUGS (21)
  1. BRIXADI [Suspect]
     Active Substance: BUPRENORPHINE
     Indication: Drug use disorder
     Dosage: UNK UNK, QW
     Route: 065
  2. BRIXADI [Suspect]
     Active Substance: BUPRENORPHINE
     Dosage: UNK UNK, QW, IN THE LUQ (LEFT UPPER QUADRANT)
     Route: 065
     Dates: start: 20050327
  3. BRIXADI [Suspect]
     Active Substance: BUPRENORPHINE
     Dosage: UNK UNK, QW, IN THE LUQ (LEFT UPPER QUADRANT)
     Route: 065
     Dates: start: 20250417
  4. BRIXADI [Suspect]
     Active Substance: BUPRENORPHINE
     Dosage: UNK UNK, QW, IN THE RLQ (RIGHT LOWER QUADRANT)
     Route: 065
     Dates: start: 20250605, end: 20250605
  5. BRIXADI [Suspect]
     Active Substance: BUPRENORPHINE
     Dosage: UNK UNK, QW, IN THE LLQ (LEFT LOWER QUADRANT)
     Route: 065
     Dates: start: 20250612, end: 20250612
  6. BRIXADI [Suspect]
     Active Substance: BUPRENORPHINE
     Dosage: UNK UNK, QW, IN THE RUQ (RIGHT UPPER QUADRANT)
     Route: 065
     Dates: start: 20250619, end: 20250619
  7. BRIXADI [Suspect]
     Active Substance: BUPRENORPHINE
     Dosage: UNK UNK, QW, IN THE RUQ (RIGHT UPPER QUADRANT)
     Route: 065
     Dates: start: 20250711
  8. BRIXADI [Suspect]
     Active Substance: BUPRENORPHINE
     Dosage: UNK UNK, QW, IN THE RIGHT BUTTOCK
     Route: 065
     Dates: start: 20250828
  9. AMITRIPTYLINE [Concomitant]
     Active Substance: AMITRIPTYLINE
     Indication: Product used for unknown indication
     Route: 065
  10. DELICE [Concomitant]
     Active Substance: DIMETHICONE\DIMETHICONE 100
     Indication: Product used for unknown indication
     Route: 065
  11. ATORVASTATIN [Concomitant]
     Active Substance: ATORVASTATIN
     Indication: Product used for unknown indication
     Route: 065
  12. BUSPIRONE [Concomitant]
     Active Substance: BUSPIRONE HYDROCHLORIDE
     Indication: Product used for unknown indication
     Route: 065
  13. SERTRALINE [Concomitant]
     Active Substance: SERTRALINE HYDROCHLORIDE
     Indication: Product used for unknown indication
     Route: 065
  14. CITALOPRAM [Concomitant]
     Active Substance: CITALOPRAM
     Indication: Product used for unknown indication
     Route: 065
  15. CLIMARA [Concomitant]
     Active Substance: ESTRADIOL
     Indication: Product used for unknown indication
     Route: 065
  16. VITAMIN B12 [Concomitant]
     Active Substance: CYANOCOBALAMIN
     Indication: Product used for unknown indication
     Route: 065
  17. FLUTICASONE [Concomitant]
     Active Substance: FLUTICASONE
     Indication: Product used for unknown indication
     Dosage: NASAL SPRAY
     Route: 065
  18. DULOXETINE [Concomitant]
     Active Substance: DULOXETINE
     Indication: Product used for unknown indication
     Route: 065
  19. HYDROXYZINE [Concomitant]
     Active Substance: HYDROXYZINE HYDROCHLORIDE
     Indication: Product used for unknown indication
     Route: 065
  20. METOPROLOL SUCCINATE [Concomitant]
     Active Substance: METOPROLOL SUCCINATE
     Indication: Product used for unknown indication
     Route: 065
  21. REMERON [Concomitant]
     Active Substance: MIRTAZAPINE
     Indication: Product used for unknown indication
     Route: 065

REACTIONS (3)
  - Injection site cellulitis [Unknown]
  - Injection site reaction [Unknown]
  - Injection site erythema [Unknown]

NARRATIVE: CASE EVENT DATE: 20250410
